FAERS Safety Report 6675296-6 (Version None)
Quarter: 2010Q2

REPORT INFORMATION
  Report Type: 
  Country: None (occurrence: None)
  Receive Date: 20100409
  Receipt Date: 20100115
  Transmission Date: 20101027
  Serious: No
  Sender: FDA-Public Use
  Company Number: A0839747A

PATIENT
  Age: 55 Year
  Sex: Female

DRUGS (7)
  1. TYKERB [Suspect]
     Dosage: 1250MG PER DAY
     Route: 048
     Dates: start: 20090921, end: 20091228
  2. XELODA [Concomitant]
  3. ALTACE [Concomitant]
  4. AMARYL [Concomitant]
  5. CELEXA [Concomitant]
  6. XANAX [Concomitant]
  7. DECADRON [Concomitant]

REACTIONS (1)
  - THERAPEUTIC RESPONSE UNEXPECTED [None]
